FAERS Safety Report 14008522 (Version 3)
Quarter: 2018Q1

REPORT INFORMATION
  Report Type: Spontaneous
  Country: FI (occurrence: FI)
  Receive Date: 20170925
  Receipt Date: 20180315
  Transmission Date: 20180508
  Serious: Yes (Other)
  Sender: FDA-Public Use
  Company Number: FI-PFIZER INC-2017410406

PATIENT
  Age: 37 Year
  Sex: Female

DRUGS (6)
  1. TEMSIROLIMUS [Suspect]
     Active Substance: TEMSIROLIMUS
     Indication: ACUTE MYELOID LEUKAEMIA
     Dosage: UNK
  2. ETOPOSIDE. [Suspect]
     Active Substance: ETOPOSIDE
     Indication: ACUTE MYELOID LEUKAEMIA
     Dosage: UNK
  3. VINBLASTINE [Suspect]
     Active Substance: VINBLASTINE
     Indication: ACUTE MYELOID LEUKAEMIA
     Dosage: UNK
  4. DASATINIB. [Suspect]
     Active Substance: DASATINIB
     Indication: ACUTE MYELOID LEUKAEMIA
     Dosage: UNK
  5. CYTARABINE. [Suspect]
     Active Substance: CYTARABINE
     Indication: ACUTE MYELOID LEUKAEMIA
     Dosage: UNK
  6. SUNITINIB MALATE. [Suspect]
     Active Substance: SUNITINIB MALATE
     Indication: ACUTE MYELOID LEUKAEMIA
     Dosage: UNK

REACTIONS (2)
  - Neoplasm progression [Unknown]
  - Neutropenic infection [Unknown]
